FAERS Safety Report 6704023-9 (Version None)
Quarter: 2010Q2

REPORT INFORMATION
  Report Type: 
  Country: None (occurrence: None)
  Receive Date: 20100430
  Receipt Date: 20100422
  Transmission Date: 20101027
  Serious: Yes (Hospitalization)
  Sender: FDA-Public Use
  Company Number: PR-BAYER-201017542NA

PATIENT
  Age: 60 Year
  Sex: Female
  Weight: 55 kg

DRUGS (35)
  1. LEUKINE [Suspect]
     Indication: DIFFUSE LARGE B-CELL LYMPHOMA
     Dosage: DAY 3 CYCLE 4 TO BE GIVEN X 4 DAYS
     Route: 058
     Dates: start: 20100409
  2. LEUKINE [Suspect]
     Dosage: DAY 3 CYCLE 2 TO BE GIVEN X 4 DAYS
     Route: 058
     Dates: start: 20100315
  3. LEUKINE [Suspect]
     Dosage: DAY 3 CYCLE 1 TO BE GIVEN X 4 DAYS
     Route: 058
     Dates: start: 20100226
  4. LEUKINE [Suspect]
     Dosage: DAY 3
     Route: 058
     Dates: start: 20100424
  5. LEUKINE [Suspect]
     Dosage: DAY 3 CYCLE 3 TO BE GIVEN X 4 DAYS
     Route: 058
     Dates: start: 20100326
  6. RITUXIMAB [Suspect]
     Indication: DIFFUSE LARGE B-CELL LYMPHOMA
     Dosage: DAY 1 CYCLE 4
     Route: 042
     Dates: start: 20100408, end: 20100408
  7. RITUXIMAB [Suspect]
     Dosage: DAY 1
     Route: 042
     Dates: start: 20100422
  8. RITUXIMAB [Suspect]
     Dosage: DAY 1 CYCLE 1
     Route: 042
     Dates: start: 20100224, end: 20100224
  9. RITUXIMAB [Suspect]
     Dosage: DAY 1 CYCLE 2
     Route: 042
     Dates: start: 20100310, end: 20100310
  10. RITUXIMAB [Suspect]
     Dosage: DAY 1 CYCLE 3
     Route: 042
     Dates: start: 20100325, end: 20100325
  11. CYCLOPHOSPHAMIDE [Suspect]
     Indication: DIFFUSE LARGE B-CELL LYMPHOMA
     Dosage: DAY 2 CYCLE 3
     Route: 042
     Dates: start: 20100325, end: 20100325
  12. CYCLOPHOSPHAMIDE [Suspect]
     Dosage: DAY 2 CYCLE 1
     Route: 042
     Dates: start: 20100225, end: 20100225
  13. CYCLOPHOSPHAMIDE [Suspect]
     Dosage: DAY 2 CYCLE 4
     Route: 042
     Dates: start: 20100408, end: 20100408
  14. CYCLOPHOSPHAMIDE [Suspect]
     Dosage: DAY 2
     Route: 042
     Dates: start: 20100423
  15. CYCLOPHOSPHAMIDE [Suspect]
     Dosage: DAY 2 CYCLE 2
     Route: 042
     Dates: start: 20100312, end: 20100312
  16. DOXORUBICIN HCL [Suspect]
     Indication: DIFFUSE LARGE B-CELL LYMPHOMA
     Dosage: DAY 2  CYCLE 4
     Route: 042
     Dates: start: 20100408, end: 20100408
  17. DOXORUBICIN HCL [Suspect]
     Dosage: DAY 2  CYCLE 3
     Route: 042
     Dates: start: 20100325, end: 20100325
  18. DOXORUBICIN HCL [Suspect]
     Dosage: DAY 2  CYCLE 2
     Route: 042
     Dates: start: 20100312, end: 20100312
  19. DOXORUBICIN HCL [Suspect]
     Dosage: DAY 2 CYCLE 1
     Route: 042
     Dates: start: 20100225, end: 20100225
  20. DOXORUBICIN HCL [Suspect]
     Dosage: DAY 2
     Route: 042
     Dates: start: 20100423
  21. VINCRISTINE [Suspect]
     Indication: DIFFUSE LARGE B-CELL LYMPHOMA
     Dosage: DAY 2 CYCLE 2
     Route: 042
     Dates: start: 20100312, end: 20100312
  22. VINCRISTINE [Suspect]
     Dosage: DAY 2
     Route: 042
     Dates: start: 20100423
  23. VINCRISTINE [Suspect]
     Dosage: DAY 2 CYCLE 1
     Route: 042
     Dates: start: 20100225, end: 20100225
  24. VINCRISTINE [Suspect]
     Dosage: DAY 2 CYCLE 4
     Route: 042
     Dates: start: 20100408, end: 20100408
  25. VINCRISTINE [Suspect]
     Dosage: DAY 2 CYCLE 3
     Route: 042
     Dates: start: 20100325, end: 20100325
  26. NEULASTA [Suspect]
     Indication: DIFFUSE LARGE B-CELL LYMPHOMA
     Dosage: DAY 3 CYLCE 1
     Route: 058
     Dates: start: 20100226, end: 20100226
  27. NEULASTA [Suspect]
     Dosage: DAY 3 CYLCE 4
     Route: 058
     Dates: start: 20100409, end: 20100409
  28. NEULASTA [Suspect]
     Dosage: DAY 3
     Route: 058
     Dates: start: 20100424
  29. NEULASTA [Suspect]
     Dosage: DAY 3 CYLCE 3
     Route: 058
     Dates: start: 20100326, end: 20100326
  30. NEULASTA [Suspect]
     Dosage: DAY 3 CYCLE 2
     Route: 058
     Dates: start: 20100315, end: 20100315
  31. SYNTHROID [Concomitant]
     Dates: start: 20091101
  32. FOSAMAX PLUS D [Concomitant]
     Dates: start: 19950101
  33. CRESTOR [Concomitant]
     Dates: start: 20070101
  34. CALCIUM + VIT D [Concomitant]
     Dates: start: 20090101
  35. VIT B12 [Concomitant]
     Dates: start: 20100201

REACTIONS (3)
  - DEHYDRATION [None]
  - DIARRHOEA [None]
  - GASTRITIS [None]
